FAERS Safety Report 18484349 (Version 3)
Quarter: 2021Q1

REPORT INFORMATION
  Report Type: Spontaneous
  Country: HR (occurrence: HR)
  Receive Date: 20201110
  Receipt Date: 20210107
  Transmission Date: 20210419
  Serious: Yes (Other)
  Sender: FDA-Public Use
  Company Number: HR-AMGEN-HRVSP2020180455

PATIENT
  Age: 64 Year
  Sex: Male
  Weight: 81 kg

DRUGS (6)
  1. ENBREL [Suspect]
     Active Substance: ETANERCEPT
     Indication: ANKYLOSING SPONDYLITIS
     Dosage: 50 MILLIGRAM, QWK
     Route: 058
     Dates: start: 20110501, end: 20200901
  2. INDOMETACIN [Concomitant]
     Active Substance: INDOMETHACIN
     Dosage: 25 MG, AS NEEDED
     Route: 048
  3. MOSTRAFIN [Concomitant]
     Active Substance: FINASTERIDE
     Dosage: 5 MILLIGRAM, QD
     Route: 048
  4. CALCIUM [Concomitant]
     Active Substance: CALCIUM
     Dosage: UNK, AS NECESSARY
  5. VITAMIN D3 [Concomitant]
     Active Substance: CHOLECALCIFEROL
     Dosage: UNK, AS NECESSARY
  6. VESOMNI [Concomitant]
     Active Substance: SOLIFENACIN\TAMSULOSIN
     Dosage: 1 DOSAGE FORM,  MG SOLIFENACIN + 0.4 MG TAMSULOZIN)
     Route: 048

REACTIONS (3)
  - Drug ineffective [Recovering/Resolving]
  - Iridocyclitis [Recovering/Resolving]
  - Disease recurrence [Recovering/Resolving]

NARRATIVE: CASE EVENT DATE: 20200615
